FAERS Safety Report 11387554 (Version 3)
Quarter: 2015Q3

REPORT INFORMATION
  Report Type: Report from Study
  Country: IT (occurrence: IT)
  Receive Date: 20150817
  Receipt Date: 20150908
  Transmission Date: 20151125
  Serious: Yes (Life-Threatening, Hospitalization, Other)
  Sender: FDA-Public Use
  Company Number: IT-WATSON-2015-16913

PATIENT
  Age: 57 Year
  Sex: Male

DRUGS (7)
  1. MIRTAZAPINE (UNKNOWN) [Suspect]
     Active Substance: MIRTAZAPINE
     Indication: ANXIETY
  2. MIRTAZAPINE (UNKNOWN) [Suspect]
     Active Substance: MIRTAZAPINE
     Indication: DEPRESSION
     Dosage: 30 MG, DAILY
     Route: 065
     Dates: start: 20141120, end: 20150123
  3. CLOMIPRAMINE (UNKNOWN) [Suspect]
     Active Substance: CLOMIPRAMINE
     Indication: DEPRESSION
     Dosage: 75 MG, DAILY
     Route: 065
     Dates: start: 20141211, end: 20150123
  4. CLOMIPRAMINE (UNKNOWN) [Suspect]
     Active Substance: CLOMIPRAMINE
     Indication: ANXIETY
  5. FINASTERIDE. [Concomitant]
     Active Substance: FINASTERIDE
     Indication: BENIGN NEOPLASM OF PROSTATE
     Dosage: 5 MG, DAILY
     Route: 065
     Dates: start: 2011
  6. CITALOPRAM [Suspect]
     Active Substance: CITALOPRAM HYDROBROMIDE
     Indication: ANXIETY
  7. CITALOPRAM [Suspect]
     Active Substance: CITALOPRAM HYDROBROMIDE
     Indication: DEPRESSION
     Dosage: 20 MG, DAILY
     Route: 065
     Dates: start: 20141106, end: 20150123

REACTIONS (8)
  - Feeling of despair [Recovered/Resolved]
  - Suicidal ideation [Recovered/Resolved]
  - Panic attack [Recovered/Resolved]
  - Drug ineffective [Recovered/Resolved]
  - Suicide attempt [Recovered/Resolved]
  - Insomnia [Recovered/Resolved]
  - Agitation [Recovered/Resolved]
  - Anxiety [Recovered/Resolved]

NARRATIVE: CASE EVENT DATE: 201411
